FAERS Safety Report 19756500 (Version 1)
Quarter: 2021Q3

REPORT INFORMATION
  Report Type: Spontaneous
  Country: GB (occurrence: GB)
  Receive Date: 20210827
  Receipt Date: 20210827
  Transmission Date: 20211014
  Serious: Yes (Other)
  Sender: FDA-Public Use
  Company Number: GB-HQ SPECIALTY-GB-2021INT000151

PATIENT

DRUGS (3)
  1. GEMCITABINE. [Suspect]
     Active Substance: GEMCITABINE
     Dosage: 725 MG/M2, SECOND DOSE LEVEL
     Route: 042
  2. CISPLATIN. [Suspect]
     Active Substance: CISPLATIN
     Indication: BILIARY TRACT DISORDER
     Dosage: 25 MG/M2, ON DAYS 1 AND 8, EVERY 21 DAYS
     Route: 065
  3. GEMCITABINE. [Suspect]
     Active Substance: GEMCITABINE
     Indication: BILIARY TRACT DISORDER
     Dosage: 625 MG/M2, STARTING DOSE LEVEL
     Route: 042

REACTIONS (2)
  - Haematemesis [Unknown]
  - Vomiting [Unknown]
